FAERS Safety Report 21926760 (Version 1)
Quarter: 2023Q1

REPORT INFORMATION
  Report Type: Spontaneous
  Country: DE (occurrence: DE)
  Receive Date: 20230130
  Receipt Date: 20230130
  Transmission Date: 20230418
  Serious: Yes (Other)
  Sender: FDA-Public Use
  Company Number: DE-EMBRYOTOX-202118152

PATIENT
  Age: 1 Day
  Sex: Male
  Weight: 2.67 kg

DRUGS (4)
  1. LAMOTRIGINE [Suspect]
     Active Substance: LAMOTRIGINE
     Indication: Foetal exposure during pregnancy
     Dosage: MATERNAL DOSE: FROM 28 AUG 2021 TO 01 JUN 2022 AT A DOSE OF 200 MG QD (1 TRIMESTER, 0. - 39.4. GESTA
     Route: 064
  2. VENLAFAXINE [Suspect]
     Active Substance: VENLAFAXINE HYDROCHLORIDE
     Indication: Foetal exposure during pregnancy
     Dosage: MATERNAL DOSE: FROM 28 AUG 2021 TO 01 JUN 2022 AT A DOSE OF 150 MG QD (1 TRIMESTER, 0. - 39.4. GESTA
     Route: 064
  3. QUETIAPINE [Suspect]
     Active Substance: QUETIAPINE
     Indication: Foetal exposure during pregnancy
     Dosage: MATERNAL DOSE: FROM 28 AUG 2021 TO 01 JUN 2022 AT A DOSE OF 50 MG QD (1 TRIMESTER, 0. - 39.4. GESTAT
     Route: 064
  4. BOOSTRIX [Concomitant]
     Active Substance: TETANUS TOXOID, REDUCED DIPHTHERIA TOXOID AND ACELLULAR PERTUSSIS VACCINE, ADSORBED ANTIGENS
     Indication: Foetal exposure during pregnancy
     Dosage: MATERNAL DOSE: FROM 13 APR 2022 TO 13 APR 2022 AT AN UNKNOWN DOSE (3, TRIMESTER, 32.4. - 32.4. GESTA
     Route: 064

REACTIONS (2)
  - Small for dates baby [Recovered/Resolved]
  - Foetal exposure during pregnancy [Unknown]

NARRATIVE: CASE EVENT DATE: 20220601
